FAERS Safety Report 9109513 (Version 2)
Quarter: 2013Q1

REPORT INFORMATION
  Report Type: Spontaneous
  Country: BR (occurrence: BR)
  Receive Date: 20130222
  Receipt Date: 20130328
  Transmission Date: 20140127
  Serious: Yes (Other)
  Sender: FDA-Public Use
  Company Number: PHHY2013BR017238

PATIENT
  Age: 57 Year
  Sex: Male
  Weight: 56 kg

DRUGS (6)
  1. FORASEQ [Suspect]
     Indication: DYSPNOEA
     Dosage: 1 DF, PRN
  2. FORASEQ [Suspect]
     Indication: EMPHYSEMA
  3. OXYCONTIN [Concomitant]
     Indication: SPINAL PAIN
     Dosage: 1 DF, Q12H
     Route: 048
     Dates: start: 201301
  4. OXYCONTIN [Concomitant]
     Indication: PAIN IN EXTREMITY
  5. ATENSINA [Concomitant]
     Indication: BLOOD PRESSURE ABNORMAL
     Dosage: 1 DF, AT NIGHT
     Route: 048
  6. FLUOXETINE [Concomitant]
     Indication: PANIC DISORDER
     Dosage: 1 DF, DAILY
     Route: 048
     Dates: start: 2000

REACTIONS (8)
  - Spinal cord neoplasm [Unknown]
  - Weight decreased [Not Recovered/Not Resolved]
  - Dyspnoea [Recovered/Resolved]
  - Pain [Recovered/Resolved]
  - Constipation [Recovered/Resolved]
  - Spinal pain [Recovering/Resolving]
  - Pain in extremity [Recovering/Resolving]
  - Drug intolerance [Recovered/Resolved]
